FAERS Safety Report 4321199-1 (Version None)
Quarter: 2004Q1

REPORT INFORMATION
  Report Type: 
  Country: None (occurrence: None)
  Receive Date: 20040322
  Receipt Date: 20040322
  Transmission Date: 20041129
  Serious: Yes (Disabling)
  Sender: FDA-Public Use
  Company Number: None

PATIENT
  Age: 34 Year
  Sex: Female
  Weight: 43.0917 kg

DRUGS (1)
  1. PAXIL [Suspect]
     Dosage: 10 MG/DAY DAILY

REACTIONS (11)
  - ACTIVITIES OF DAILY LIVING IMPAIRED [None]
  - ANOREXIA [None]
  - DEPRESSION [None]
  - DRUG WITHDRAWAL SYNDROME [None]
  - FATIGUE [None]
  - IMPAIRED WORK ABILITY [None]
  - INSOMNIA [None]
  - NIGHTMARE [None]
  - PHARYNGOLARYNGEAL PAIN [None]
  - SUICIDAL IDEATION [None]
  - WEIGHT DECREASED [None]
